FAERS Safety Report 24240571 (Version 1)
Quarter: 2024Q3

REPORT INFORMATION
  Report Type: Spontaneous
  Country: NL (occurrence: NL)
  Receive Date: 20240822
  Receipt Date: 20240822
  Transmission Date: 20241017
  Serious: Yes (Disabling)
  Sender: AMGEN
  Company Number: NL-AMGEN-NLDSP2024164241

PATIENT
  Age: 35 Year
  Sex: Male

DRUGS (1)
  1. PROLIA [Suspect]
     Active Substance: DENOSUMAB
     Indication: Osteoporosis
     Dosage: UNK
     Route: 065
     Dates: start: 20211018

REACTIONS (7)
  - Night sweats [Not Recovered/Not Resolved]
  - Nausea [Not Recovered/Not Resolved]
  - Fatigue [Not Recovered/Not Resolved]
  - Influenza like illness [Unknown]
  - Dizziness [Not Recovered/Not Resolved]
  - Bone pain [Not Recovered/Not Resolved]
  - Impaired work ability [Unknown]
